FAERS Safety Report 19047220 (Version 2)
Quarter: 2021Q3

REPORT INFORMATION
  Report Type: Spontaneous
  Country: US (occurrence: US)
  Receive Date: 20210323
  Receipt Date: 20210921
  Transmission Date: 20211014
  Serious: Yes (Other)
  Sender: FDA-Public Use
  Company Number: US-GILEAD-2021-0522286

PATIENT
  Sex: Male
  Weight: 86.17 kg

DRUGS (49)
  1. SUSTIVA [Concomitant]
     Active Substance: EFAVIRENZ
  2. CHERATUSSIN [Concomitant]
     Active Substance: AMMONIUM CHLORIDE\DEXTROMETHORPHAN\SODIUM CITRATE
  3. LOPERAMIDE [Concomitant]
     Active Substance: LOPERAMIDE
  4. PATADAY [Concomitant]
     Active Substance: OLOPATADINE HYDROCHLORIDE
  5. BIKTARVY [Concomitant]
     Active Substance: BICTEGRAVIR SODIUM\EMTRICITABINE\TENOFOVIR ALAFENAMIDE FUMARATE
  6. KALETRA [Concomitant]
     Active Substance: LOPINAVIR\RITONAVIR
  7. NORVIR [Concomitant]
     Active Substance: RITONAVIR
  8. BENZONATATE. [Concomitant]
     Active Substance: BENZONATATE
  9. MOMETASONE [Concomitant]
     Active Substance: MOMETASONE
  10. MONTELUKAST [Concomitant]
     Active Substance: MONTELUKAST SODIUM
  11. SILDENAFIL. [Concomitant]
     Active Substance: SILDENAFIL
  12. SUMATRIPTAN. [Concomitant]
     Active Substance: SUMATRIPTAN
  13. REYATAZ [Concomitant]
     Active Substance: ATAZANAVIR SULFATE
  14. AMOXICILLIN. [Concomitant]
     Active Substance: AMOXICILLIN
  15. ANDROGEL [Concomitant]
     Active Substance: TESTOSTERONE
  16. EPINEPHRINE. [Concomitant]
     Active Substance: EPINEPHRINE
  17. EPIPEN [Concomitant]
     Active Substance: EPINEPHRINE
  18. OLOPATADINE. [Concomitant]
     Active Substance: OLOPATADINE
  19. PEG [MACROGOL] [Concomitant]
  20. VALTREX [Concomitant]
     Active Substance: VALACYCLOVIR HYDROCHLORIDE
  21. TRUVADA [Suspect]
     Active Substance: EMTRICITABINE\TENOFOVIR DISOPROXIL FUMARATE
     Indication: HIV INFECTION
     Dosage: UNK
     Route: 048
     Dates: start: 20041201, end: 201908
  22. ISENTRESS [Concomitant]
     Active Substance: RALTEGRAVIR POTASSIUM
  23. AZITHROMYCIN ANHYDROUS. [Concomitant]
     Active Substance: AZITHROMYCIN ANHYDROUS
  24. BACLOFEN. [Concomitant]
     Active Substance: BACLOFEN
  25. HYDROCORTISONE. [Concomitant]
     Active Substance: HYDROCORTISONE
  26. HYDROXYZINE [Concomitant]
     Active Substance: HYDROXYZINE HYDROCHLORIDE
  27. METOPROLOL. [Concomitant]
     Active Substance: METOPROLOL
  28. METRONIDAZOLE. [Concomitant]
     Active Substance: METRONIDAZOLE
  29. SINGULAIR [Concomitant]
     Active Substance: MONTELUKAST SODIUM
  30. TOPIRAMATE. [Concomitant]
     Active Substance: TOPIRAMATE
  31. LEVOFLOXACIN. [Concomitant]
     Active Substance: LEVOFLOXACIN
  32. PAIN + FEVER [Concomitant]
  33. POLYETHYLENE [Concomitant]
     Active Substance: HIGH DENSITY POLYETHYLENE
  34. PREDNISONE. [Concomitant]
     Active Substance: PREDNISONE
  35. REFRESH LACRI?LUBE [Concomitant]
     Active Substance: MINERAL OIL\PETROLATUM
  36. SUPREP BOWEL PREP [Concomitant]
     Active Substance: MAGNESIUM SULFATE\POTASSIUM SULFATE\SODIUM SULFATE
  37. TESTOSTERONE. [Concomitant]
     Active Substance: TESTOSTERONE
  38. ZOLPIDEM [Concomitant]
     Active Substance: ZOLPIDEM TARTRATE
  39. BACTRIM [Concomitant]
     Active Substance: SULFAMETHOXAZOLE\TRIMETHOPRIM
  40. MECLIZINE HCL [Concomitant]
     Active Substance: MECLIZINE HYDROCHLORIDE
  41. PROCTOSOL [Concomitant]
  42. TEMAZEPAM. [Concomitant]
     Active Substance: TEMAZEPAM
  43. AMITRIPTYLINE [Concomitant]
     Active Substance: AMITRIPTYLINE
  44. DEPO?TESTOSTERONE [Concomitant]
     Active Substance: TESTOSTERONE CYPIONATE
  45. PATANASE [Concomitant]
     Active Substance: OLOPATADINE HYDROCHLORIDE
  46. Q?TUSSIN [Concomitant]
     Active Substance: GUAIFENESIN
  47. TIVICAY [Concomitant]
     Active Substance: DOLUTEGRAVIR SODIUM
  48. AZELASTINE. [Concomitant]
     Active Substance: AZELASTINE HYDROCHLORIDE
  49. SULFAMETHOXAZOLE [Concomitant]
     Active Substance: SULFAMETHOXAZOLE

REACTIONS (13)
  - Anxiety [Not Recovered/Not Resolved]
  - Anhedonia [Not Recovered/Not Resolved]
  - Foot fracture [Not Recovered/Not Resolved]
  - Cyst [Unknown]
  - Pain [Not Recovered/Not Resolved]
  - Hip fracture [Not Recovered/Not Resolved]
  - Femoral neck fracture [Not Recovered/Not Resolved]
  - Emotional distress [Not Recovered/Not Resolved]
  - Depression [Not Recovered/Not Resolved]
  - Gait disturbance [Not Recovered/Not Resolved]
  - Osteoporosis [Not Recovered/Not Resolved]
  - Hand fracture [Recovered/Resolved]
  - Dysstasia [Not Recovered/Not Resolved]

NARRATIVE: CASE EVENT DATE: 2007
